FAERS Safety Report 6416995-0 (Version None)
Quarter: 2009Q4

REPORT INFORMATION
  Report Type: 
  Country: None (occurrence: None)
  Receive Date: 20091027
  Receipt Date: 20090708
  Transmission Date: 20100525
  Serious: No
  Sender: FDA-Public Use
  Company Number: US-ALLERGAN-0909636US

PATIENT
  Age: 64 Year
  Sex: Female

DRUGS (3)
  1. ALPHAGAN P [Suspect]
     Indication: POSTOPERATIVE CARE
     Dosage: UNK, BID
     Route: 047
     Dates: start: 20090501
  2. ALPHAGAN P [Suspect]
     Indication: HALO VISION
  3. INHALER [Concomitant]
     Indication: ASTHMA

REACTIONS (1)
  - DYSPNOEA [None]
